FAERS Safety Report 5660253-9 (Version None)
Quarter: 2008Q1

REPORT INFORMATION
  Report Type: 
  Country: None (occurrence: None)
  Receive Date: 20080212
  Receipt Date: 20070530
  Transmission Date: 20080703
  Serious: Yes (Other)
  Sender: FDA-Public Use
  Company Number: MC200700442

PATIENT
  Age: 84 Year
  Sex: Female

DRUGS (3)
  1. ANGIOMAX [Suspect]
     Indication: PERCUTANEOUS CORONARY INTERVENTION
     Dosage: 0.75 MG/KG, BOLUS, IV BOLUS; 1.75 MG/KG, HR, INTRAVENOUS; 0.75 MG/KG, BOLUS, IV BOLUS
     Route: 040
     Dates: start: 20070529, end: 20070529
  2. ANGIOMAX [Suspect]
     Indication: PERCUTANEOUS CORONARY INTERVENTION
     Dosage: 0.75 MG/KG, BOLUS, IV BOLUS; 1.75 MG/KG, HR, INTRAVENOUS; 0.75 MG/KG, BOLUS, IV BOLUS
     Route: 040
     Dates: start: 20070529, end: 20070529
  3. ANGIOMAX [Suspect]
     Indication: PERCUTANEOUS CORONARY INTERVENTION
     Dosage: 0.75 MG/KG, BOLUS, IV BOLUS; 1.75 MG/KG, HR, INTRAVENOUS; 0.75 MG/KG, BOLUS, IV BOLUS
     Route: 040
     Dates: start: 20070529

REACTIONS (3)
  - COAGULATION TIME ABNORMAL [None]
  - CORONARY ARTERY THROMBOSIS [None]
  - DRUG INEFFECTIVE [None]
